FAERS Safety Report 23394602 (Version 3)
Quarter: 2024Q1

REPORT INFORMATION
  Report Type: Report from Study
  Country: US (occurrence: US)
  Receive Date: 20240112
  Receipt Date: 20240319
  Transmission Date: 20240410
  Serious: No
  Sender: FDA-Public Use
  Company Number: US-ACADIA PHARMACEUTICALS INC.-ACA-2023-TRF-005943

PATIENT
  Age: 11 Year
  Sex: Female

DRUGS (7)
  1. DAYBUE [Suspect]
     Active Substance: TROFINETIDE
     Indication: Rett syndrome
     Dosage: 40 MILLILITER, BID
     Route: 048
     Dates: start: 20231212
  2. DAYBUE [Suspect]
     Active Substance: TROFINETIDE
     Dosage: INCREASED THE DOSAGE
     Route: 048
  3. DAYBUE [Suspect]
     Active Substance: TROFINETIDE
     Dosage: 40 MILLILITRE, BID
     Route: 048
  4. CLOBAZAM [Concomitant]
     Active Substance: CLOBAZAM
     Dosage: 5 MILLILITER, BID
     Dates: start: 20161011
  5. DIVALPROEX SODIUM [Concomitant]
     Active Substance: DIVALPROEX SODIUM
     Dosage: 125 MILLIGRAM, QD
  6. EPIDIOLEX [Concomitant]
     Active Substance: CANNABIDIOL
     Dosage: 250 MILLIGRAM, BID
  7. RUFINAMIDE [Concomitant]
     Active Substance: RUFINAMIDE
     Dosage: 9 MILLILITER, BID

REACTIONS (6)
  - Constipation [Not Recovered/Not Resolved]
  - Influenza [Recovered/Resolved]
  - Vomiting [Not Recovered/Not Resolved]
  - Diarrhoea [Not Recovered/Not Resolved]
  - Anxiety [Not Recovered/Not Resolved]
  - Diarrhoea [Not Recovered/Not Resolved]

NARRATIVE: CASE EVENT DATE: 20231201
